FAERS Safety Report 7582457-0 (Version None)
Quarter: 2011Q2

REPORT INFORMATION
  Report Type: 
  Country: None (occurrence: None)
  Receive Date: 20110630
  Receipt Date: 20110623
  Transmission Date: 20111010
  Serious: No
  Sender: FDA-Public Use
  Company Number: US-PFIZER INC-2011140347

PATIENT
  Sex: Male
  Weight: 63.039 kg

DRUGS (5)
  1. ZYVOX [Suspect]
     Indication: STAPHYLOCOCCAL INFECTION
     Dosage: 600 MG, 2X/DAY
     Route: 048
     Dates: start: 20110621
  2. TIMOLOL [Concomitant]
     Indication: EYE DISORDER
     Dosage: UNK
  3. TRIPROLIDINE [Concomitant]
     Indication: HERPES VIRUS INFECTION
     Dosage: UNK
  4. ACYCLOVIR [Concomitant]
     Indication: EYE DISORDER
     Dosage: UNK
  5. LOTEMAX [Concomitant]
     Indication: HERPES VIRUS INFECTION
     Dosage: UNK

REACTIONS (1)
  - DIARRHOEA [None]
